FAERS Safety Report 5279585-1 (Version None)
Quarter: 2007Q1

REPORT INFORMATION
  Report Type: 
  Country: None (occurrence: None)
  Receive Date: 20070328
  Receipt Date: 20070316
  Transmission Date: 20070707
  Serious: Yes (Other)
  Sender: FDA-Public Use
  Company Number: AU-PFIZER INC-2007022461

PATIENT

DRUGS (1)
  1. SUTENT [Suspect]

REACTIONS (5)
  - DIARRHOEA [None]
  - DYSPNOEA [None]
  - LETHARGY [None]
  - PAIN [None]
  - PARAESTHESIA [None]
